FAERS Safety Report 8373565-5 (Version None)
Quarter: 2012Q2

REPORT INFORMATION
  Report Type: 
  Country: None (occurrence: None)
  Receive Date: 20120521
  Receipt Date: 20110809
  Transmission Date: 20120825
  Serious: No
  Sender: FDA-Public Use
  Company Number: US-TEVA-2011004196

PATIENT
  Sex: Male
  Weight: 105.33 kg

DRUGS (11)
  1. ALLOPURINOL [Concomitant]
     Dates: start: 20100927
  2. HYDROCHLOROTHIAZIDE [Concomitant]
  3. RITUXAN [Concomitant]
  4. BENAZEPRIL HYDROCHLORIDE [Concomitant]
  5. ZOFRAN [Concomitant]
  6. DEXAMETHASONE [Concomitant]
  7. ALOXI [Concomitant]
  8. NIACIN [Concomitant]
  9. TREANDA [Suspect]
     Indication: CHRONIC LYMPHOCYTIC LEUKAEMIA
     Route: 042
     Dates: start: 20110712
  10. TYLENOL [Concomitant]
  11. BENADRYL [Concomitant]

REACTIONS (1)
  - RASH GENERALISED [None]
